FAERS Safety Report 15933417 (Version 3)
Quarter: 2020Q2

REPORT INFORMATION
  Report Type: Spontaneous
  Country: US (occurrence: US)
  Receive Date: 20190207
  Receipt Date: 20200422
  Transmission Date: 20200713
  Serious: Yes (Hospitalization, Other)
  Sender: FDA-Public Use
  Company Number: US-ASTRAZENECA-2019SE18612

PATIENT
  Age: 18282 Day
  Sex: Male
  Weight: 88.9 kg

DRUGS (60)
  1. NEXIUM [Suspect]
     Active Substance: ESOMEPRAZOLE MAGNESIUM
     Indication: GASTROOESOPHAGEAL REFLUX DISEASE
     Route: 048
     Dates: start: 20060905, end: 20080509
  2. PRILOSEC [Suspect]
     Active Substance: OMEPRAZOLE MAGNESIUM
     Indication: GASTROOESOPHAGEAL REFLUX DISEASE
     Dosage: GENERIC
     Route: 065
     Dates: start: 20121219, end: 20130526
  3. AMLODIPINE [Concomitant]
     Active Substance: AMLODIPINE BESYLATE
     Indication: HYPERTENSION
     Route: 065
     Dates: start: 20120101, end: 20161201
  4. NOVOLOG [Concomitant]
     Active Substance: INSULIN ASPART
     Indication: DIABETES MELLITUS
     Route: 065
     Dates: start: 20150101, end: 20151201
  5. FUROSEMIDE. [Concomitant]
     Active Substance: FUROSEMIDE
     Indication: HYPERTENSION
     Route: 065
     Dates: start: 20120101, end: 20150201
  6. CIPRO [Concomitant]
     Active Substance: CIPROFLOXACIN HYDROCHLORIDE
     Route: 065
     Dates: start: 20040608
  7. DITROPAN [Concomitant]
     Active Substance: OXYBUTYNIN CHLORIDE
     Route: 065
     Dates: start: 20121005
  8. ZOFRAN [Concomitant]
     Active Substance: ONDANSETRON HYDROCHLORIDE
     Route: 065
     Dates: start: 20140225
  9. PRILOSEC [Suspect]
     Active Substance: OMEPRAZOLE MAGNESIUM
     Indication: GASTROOESOPHAGEAL REFLUX DISEASE
     Dosage: GENERIC
     Route: 065
     Dates: start: 20150120, end: 20150603
  10. OXYCODONE [Concomitant]
     Active Substance: OXYCODONE
     Indication: ANALGESIC THERAPY
     Route: 065
     Dates: start: 20120601, end: 20161001
  11. TACROLIMUS. [Concomitant]
     Active Substance: TACROLIMUS
     Indication: RENAL TRANSPLANT
     Route: 065
     Dates: start: 20150101, end: 20160101
  12. VICODIN [Concomitant]
     Active Substance: ACETAMINOPHEN\HYDROCODONE BITARTRATE
     Route: 065
     Dates: start: 20081021
  13. ELAVIL [Concomitant]
     Active Substance: AMITRIPTYLINE HYDROCHLORIDE
     Route: 065
     Dates: start: 20110818
  14. APRESOLIN [Concomitant]
     Active Substance: HYDRALAZINE HYDROCHLORIDE
     Route: 065
     Dates: start: 20110818
  15. GLUCAGEN [Concomitant]
     Active Substance: GLUCAGON HYDROCHLORIDE
     Route: 065
     Dates: start: 20121005
  16. ATIVAN [Concomitant]
     Active Substance: LORAZEPAM
     Route: 065
     Dates: start: 20140225
  17. ALPRAZOLAM. [Concomitant]
     Active Substance: ALPRAZOLAM
     Indication: ANXIETY
     Route: 065
     Dates: start: 20140101, end: 20141201
  18. LIPITOR [Concomitant]
     Active Substance: ATORVASTATIN CALCIUM
     Route: 065
     Dates: start: 20080416
  19. HEPARIN [Concomitant]
     Active Substance: HEPARIN SODIUM
     Route: 065
     Dates: start: 20140225
  20. PRILOSEC [Suspect]
     Active Substance: OMEPRAZOLE MAGNESIUM
     Indication: GASTROOESOPHAGEAL REFLUX DISEASE
     Route: 048
     Dates: start: 20111123, end: 20160409
  21. PRILOSEC [Suspect]
     Active Substance: OMEPRAZOLE MAGNESIUM
     Indication: GASTROOESOPHAGEAL REFLUX DISEASE
     Dosage: GENERIC
     Route: 065
     Dates: start: 20120515, end: 20120908
  22. GLYBURIDE. [Concomitant]
     Active Substance: GLYBURIDE
     Route: 065
     Dates: start: 20080416
  23. AZITHROMYCIN ANHYDROUS. [Concomitant]
     Active Substance: AZITHROMYCIN ANHYDROUS
     Route: 065
     Dates: start: 20070207
  24. COLACE [Concomitant]
     Active Substance: DOCUSATE SODIUM
     Route: 065
     Dates: start: 20101027
  25. HYDRODIURIL [Concomitant]
     Active Substance: HYDROCHLOROTHIAZIDE
     Route: 065
     Dates: start: 20121005
  26. NEXIUM [Suspect]
     Active Substance: ESOMEPRAZOLE MAGNESIUM
     Indication: GASTROOESOPHAGEAL REFLUX DISEASE
     Route: 048
     Dates: start: 20111123, end: 20120125
  27. VIAGRA [Concomitant]
     Active Substance: SILDENAFIL CITRATE
     Route: 065
     Dates: start: 20080416
  28. FLOMAX [Concomitant]
     Active Substance: TAMSULOSIN HYDROCHLORIDE
     Route: 048
     Dates: start: 20080429
  29. SUBLIMAZE [Concomitant]
     Active Substance: FENTANYL CITRATE
     Route: 065
     Dates: start: 20110923
  30. GOLYTELY [Concomitant]
     Active Substance: POLYETHYLENE GLYCOL 3350\POTASSIUM CHLORIDE\SODIUM BICARBONATE\SODIUM CHLORIDE\SODIUM SULFATE ANHYDROUS
     Route: 065
     Dates: start: 20110816
  31. DULCOLAX NOS [Concomitant]
     Active Substance: BISACODYL OR DOCUSATE SODIUM
     Route: 065
     Dates: start: 20110816
  32. DILAUDID [Concomitant]
     Active Substance: HYDROMORPHONE HYDROCHLORIDE
     Route: 065
     Dates: start: 20121005
  33. VASOTEC [Concomitant]
     Active Substance: ENALAPRIL MALEATE
     Route: 065
     Dates: start: 20140225
  34. NEXIUM [Suspect]
     Active Substance: ESOMEPRAZOLE MAGNESIUM
     Indication: GASTROOESOPHAGEAL REFLUX DISEASE
     Route: 048
     Dates: start: 20111123, end: 20160409
  35. PRILOSEC [Suspect]
     Active Substance: OMEPRAZOLE MAGNESIUM
     Indication: GASTROOESOPHAGEAL REFLUX DISEASE
     Dosage: GENERIC
     Route: 065
     Dates: start: 20150707, end: 20160409
  36. METOPROLOL. [Concomitant]
     Active Substance: METOPROLOL
     Indication: HYPERTENSION
     Route: 065
     Dates: start: 20121001, end: 20161201
  37. MAG OXIDE [Concomitant]
     Active Substance: MAGNESIUM OXIDE
     Indication: BLOOD MAGNESIUM
     Route: 065
     Dates: start: 20160101, end: 20161201
  38. SULFAMETH [Concomitant]
     Indication: INFECTION
     Route: 065
     Dates: start: 20160101, end: 20161201
  39. HUMULIN R [Concomitant]
     Active Substance: INSULIN HUMAN
     Route: 065
     Dates: start: 20071019
  40. ULTRAM [Concomitant]
     Active Substance: TRAMADOL HYDROCHLORIDE
     Route: 065
     Dates: start: 20070501
  41. CELEBREX [Concomitant]
     Active Substance: CELECOXIB
     Route: 065
     Dates: start: 20040608
  42. URSODIOL. [Concomitant]
     Active Substance: URSODIOL
     Route: 065
     Dates: start: 20140222
  43. BUPIVACAINE. [Concomitant]
     Active Substance: BUPIVACAINE
     Route: 065
     Dates: start: 20140225
  44. TRANSDERM SCOP [Concomitant]
     Active Substance: SCOPOLAMINE
     Route: 065
     Dates: start: 20140225
  45. PRILOSEC [Suspect]
     Active Substance: OMEPRAZOLE MAGNESIUM
     Indication: GASTROOESOPHAGEAL REFLUX DISEASE
     Dosage: GENERIC
     Route: 048
     Dates: start: 20121005
  46. LANTUS [Concomitant]
     Active Substance: INSULIN GLARGINE
     Indication: DIABETES MELLITUS
     Route: 065
     Dates: start: 20150101, end: 20151201
  47. ASPIRIN. [Concomitant]
     Active Substance: ASPIRIN
     Indication: BLOOD PRESSURE ABNORMAL
     Route: 065
     Dates: start: 2008, end: 2009
  48. PERCOCET [Concomitant]
     Active Substance: ACETAMINOPHEN\OXYCODONE HYDROCHLORIDE
     Route: 065
     Dates: start: 20081016
  49. CLEOCIN [Concomitant]
     Active Substance: CLINDAMYCIN PHOSPHATE
     Route: 065
     Dates: start: 20081016
  50. VERSED [Concomitant]
     Active Substance: MIDAZOLAM HYDROCHLORIDE
     Route: 065
     Dates: start: 20110923
  51. VITAMIN D [Concomitant]
     Active Substance: VITAMIN D NOS
     Route: 065
     Dates: start: 20110518
  52. BENICAR [Concomitant]
     Active Substance: OLMESARTAN MEDOXOMIL
     Route: 065
     Dates: start: 20110509
  53. COREG [Concomitant]
     Active Substance: CARVEDILOL
     Route: 065
     Dates: start: 20110506
  54. RENVELA [Concomitant]
     Active Substance: SEVELAMER CARBONATE
     Indication: DIALYSIS
     Route: 065
     Dates: start: 20121201, end: 20140801
  55. GABAPENTIN. [Concomitant]
     Active Substance: GABAPENTIN
     Indication: ANALGESIC THERAPY
     Route: 065
     Dates: start: 20120601
  56. METFORMIN HCL [Concomitant]
     Active Substance: METFORMIN HYDROCHLORIDE
     Route: 065
     Dates: start: 20080416
  57. ATACAND [Concomitant]
     Active Substance: CANDESARTAN CILEXETIL
     Route: 065
     Dates: start: 20040608
  58. BACTRIM [Concomitant]
     Active Substance: SULFAMETHOXAZOLE\TRIMETHOPRIM
     Route: 065
     Dates: start: 20121005
  59. FLUVIRIN NOS [Concomitant]
     Active Substance: INFLUENZA VIRUS VACCINE
     Route: 065
     Dates: start: 20121005
  60. PEPCID [Concomitant]
     Active Substance: FAMOTIDINE
     Route: 065
     Dates: start: 20140225

REACTIONS (7)
  - Nephrogenic anaemia [Unknown]
  - End stage renal disease [Not Recovered/Not Resolved]
  - Acute kidney injury [Unknown]
  - Renal failure [Unknown]
  - Hyperparathyroidism secondary [Unknown]
  - Anxiety [Unknown]
  - Chronic kidney disease [Unknown]

NARRATIVE: CASE EVENT DATE: 20100809
